FAERS Safety Report 24688196 (Version 1)
Quarter: 2024Q4

REPORT INFORMATION
  Report Type: Spontaneous
  Country: US (occurrence: US)
  Receive Date: 20241202
  Receipt Date: 20241202
  Transmission Date: 20250114
  Serious: No
  Sender: SANOFI AVENTIS
  Company Number: US-SA-2024SA351961

PATIENT
  Age: 53 Year
  Sex: Female
  Weight: 81.65 kg

DRUGS (1)
  1. DUPIXENT [Suspect]
     Active Substance: DUPILUMAB
     Indication: Eczema
     Dosage: 300 MG, QOW
     Route: 003
     Dates: start: 20221101

REACTIONS (2)
  - Incorrect route of product administration [Unknown]
  - Intercepted product storage error [Unknown]

NARRATIVE: CASE EVENT DATE: 20221101
